FAERS Safety Report 11828656 (Version 1)
Quarter: 2015Q4

REPORT INFORMATION
  Report Type: Spontaneous
  Country: US (occurrence: US)
  Receive Date: 20151211
  Receipt Date: 20151211
  Transmission Date: 20160305
  Serious: No
  Sender: FDA-Public Use
  Company Number: US-JUBILANT CADISTA PHARMACEUTICALS-2015JUB00072

PATIENT
  Sex: Female

DRUGS (2)
  1. METHYLPREDNISOLONE. [Suspect]
     Active Substance: METHYLPREDNISOLONE
     Dosage: UNK, AS DIRECTED
     Route: 048
     Dates: start: 20150302, end: 201503
  2. AMOXICILLIN AND CLAVULANATE [Suspect]
     Active Substance: AMOXICILLIN\CLAVULANIC ACID
     Dosage: 875 MG, 2X/DAY
     Dates: start: 20150225, end: 201503

REACTIONS (2)
  - Drug hypersensitivity [Unknown]
  - Pain [Unknown]

NARRATIVE: CASE EVENT DATE: 20150302
